FAERS Safety Report 8250867-4 (Version None)
Quarter: 2012Q1

REPORT INFORMATION
  Report Type: 
  Country: None (occurrence: None)
  Receive Date: 20120330
  Receipt Date: 20120315
  Transmission Date: 20120608
  Serious: Yes (Hospitalization)
  Sender: FDA-Public Use
  Company Number: DSJ-2012-05190

PATIENT
  Age: 57 Year
  Sex: Male

DRUGS (4)
  1. BENICAR HCT [Suspect]
     Indication: HYPERTENSION
     Dosage: 20/12/5 MG (1 IN 1 D), PER ORAL
     Route: 048
  2. TCAGRELOR [Concomitant]
  3. ANTICOAGULANT MEDICINE [Suspect]
     Indication: INFARCTION
     Dosage: PER ORAL
     Route: 048
     Dates: start: 20110901, end: 20110901
  4. ASPIRIN [Concomitant]

REACTIONS (2)
  - INFARCTION [None]
  - HAEMATOMA [None]
